FAERS Safety Report 5162817-8 (Version None)
Quarter: 2006Q4

REPORT INFORMATION
  Report Type: 
  Country: None (occurrence: None)
  Receive Date: 20061201
  Receipt Date: 20061108
  Transmission Date: 20070319
  Serious: Yes (Other)
  Sender: FDA-Public Use
  Company Number: US-GLAXOSMITHKLINE-A0626745A

PATIENT
  Age: 52 Year
  Sex: Female
  Weight: 59.1 kg

DRUGS (8)
  1. FLONASE [Suspect]
     Dosage: 100MCG TWICE PER DAY
     Route: 045
  2. LEVOTHYROXINE SODIUM [Concomitant]
     Route: 048
  3. BENADRYL [Concomitant]
     Route: 048
  4. XANAX [Concomitant]
     Route: 048
  5. CLARINEX [Concomitant]
     Route: 048
  6. TYLENOL [Concomitant]
     Route: 048
  7. EXCEDRIN SINUS [Concomitant]
     Route: 048
  8. ADVIL [Concomitant]
     Route: 048

REACTIONS (5)
  - BLOOD CORTISOL INCREASED [None]
  - DEXAMETHASONE SUPPRESSION TEST POSITIVE [None]
  - LYMPHOPENIA [None]
  - NEUTROPENIA [None]
  - WHITE BLOOD CELL COUNT DECREASED [None]
